FAERS Safety Report 10888297 (Version 1)
Quarter: 2015Q1

REPORT INFORMATION
  Report Type: Not Available
  Country: US (occurrence: US)
  Receive Date: 20150304
  Receipt Date: 20150304
  Transmission Date: 20150721
  Serious: Yes (Other)
  Sender: FDA-Public Use
  Company Number: US-LUPIN PHARMACEUTICALS INC.-E2B_00003223

PATIENT
  Age: 43 Year
  Sex: Female

DRUGS (1)
  1. SERTRALINE TABLETS USP 100 MG [Suspect]
     Active Substance: SERTRALINE HYDROCHLORIDE
     Indication: DEPRESSION
     Dates: start: 2010, end: 201501

REACTIONS (1)
  - Coeliac disease [Not Recovered/Not Resolved]

NARRATIVE: CASE EVENT DATE: 201410
